FAERS Safety Report 4800530-4 (Version None)
Quarter: 2005Q4

REPORT INFORMATION
  Report Type: 
  Country: None (occurrence: None)
  Receive Date: 20051014
  Receipt Date: 20050927
  Transmission Date: 20060501
  Serious: Yes (Life-Threatening, Hospitalization, Other)
  Sender: FDA-Public Use
  Company Number: EWC050945929

PATIENT
  Age: 34 Year
  Sex: Female
  Weight: 110 kg

DRUGS (3)
  1. ZYPREXA [Suspect]
     Indication: BIPOLAR I DISORDER
     Dosage: 10 MG/ I  DAY
     Dates: start: 20020101, end: 20050801
  2. EFEXOR (VENLAFAXINE0 [Concomitant]
  3. LAMICTAL [Concomitant]

REACTIONS (1)
  - PULMONARY EMBOLISM [None]
